FAERS Safety Report 8500635-0 (Version None)
Quarter: 2012Q2

REPORT INFORMATION
  Report Type: 
  Country: None (occurrence: None)
  Receive Date: 20120405
  Receipt Date: 20091103
  Transmission Date: 20120825
  Serious: Yes (Other)
  Sender: FDA-Public Use
  Company Number: PHEH2008US11621

PATIENT
  Sex: Female

DRUGS (3)
  1. MAGNESIUM SULFATE [Suspect]
     Dosage: , INTRAVENOUS
     Route: 042
  2. RECLAST [Suspect]
     Dosage: INTRAVENOUS
     Route: 042
  3. POTASSIUM CHLORIDE [Suspect]
     Dosage: , INTRAVENOUS
     Route: 042

REACTIONS (1)
  - MUSCLE SPASMS [None]
